FAERS Safety Report 6933754-0 (Version None)
Quarter: 2010Q3

REPORT INFORMATION
  Report Type: 
  Country: None (occurrence: None)
  Receive Date: 20100820
  Receipt Date: 20100810
  Transmission Date: 20110219
  Serious: Yes (Other)
  Sender: FDA-Public Use
  Company Number: US-PFIZER INC-2010101069

PATIENT
  Sex: Female

DRUGS (2)
  1. GEODON [Suspect]
     Dosage: UNK
  2. LAMICTAL [Concomitant]
     Indication: CONVULSION
     Dosage: UNK

REACTIONS (15)
  - ANXIETY [None]
  - APHAGIA [None]
  - ARTHROPATHY [None]
  - CHEST DISCOMFORT [None]
  - CHOKING [None]
  - DIVERTICULUM [None]
  - DYSPHAGIA [None]
  - DYSPNOEA [None]
  - DYSTONIA [None]
  - EMOTIONAL DISTRESS [None]
  - FEELING ABNORMAL [None]
  - GAIT DISTURBANCE [None]
  - INSOMNIA [None]
  - MUSCLE SPASMS [None]
  - PAIN [None]
